FAERS Safety Report 7765894-0 (Version None)
Quarter: 2011Q3

REPORT INFORMATION
  Report Type: 
  Country: None (occurrence: None)
  Receive Date: 20110921
  Receipt Date: 20110505
  Transmission Date: 20111222
  Serious: No
  Sender: FDA-Public Use
  Company Number: US-BAYER-2011-040138

PATIENT
  Age: 32 Year
  Sex: Male
  Weight: 86 kg

DRUGS (3)
  1. ALEVE (CAPLET) [Suspect]
     Indication: ANALGESIC THERAPY
     Dosage: 2 TABS DAILY
     Route: 048
     Dates: start: 20110430, end: 20110502
  2. PEPCID [Concomitant]
  3. ALEVE (CAPLET) [Suspect]
     Dosage: 2 TABS DAILY
     Route: 048
     Dates: start: 20110502, end: 20110504

REACTIONS (1)
  - DYSGEUSIA [None]
